FAERS Safety Report 8050711-4 (Version None)
Quarter: 2012Q1

REPORT INFORMATION
  Report Type: 
  Country: None (occurrence: None)
  Receive Date: 20120117
  Receipt Date: 20120117
  Transmission Date: 20120608
  Serious: Yes (Hospitalization)
  Sender: FDA-Public Use
  Company Number: None

PATIENT
  Sex: Female
  Weight: 65.77 kg

DRUGS (2)
  1. CYMBALTA [Suspect]
     Indication: TENSION HEADACHE
     Dosage: 30MG
     Route: 048
     Dates: start: 20120102, end: 20120112
  2. LAMICTAL [Concomitant]
     Route: 048

REACTIONS (8)
  - DYSTONIA [None]
  - MOVEMENT DISORDER [None]
  - NIGHTMARE [None]
  - VISION BLURRED [None]
  - DIARRHOEA [None]
  - WITHDRAWAL SYNDROME [None]
  - SUICIDAL IDEATION [None]
  - DIZZINESS [None]
